FAERS Safety Report 7428422-5 (Version None)
Quarter: 2011Q2

REPORT INFORMATION
  Report Type: 
  Country: None (occurrence: None)
  Receive Date: 20110421
  Receipt Date: 20110411
  Transmission Date: 20111010
  Serious: Yes (Other)
  Sender: FDA-Public Use
  Company Number: PHHY2011DO29784

PATIENT
  Age: 30 Year
  Sex: Female

DRUGS (3)
  1. THROMBOCID [Concomitant]
  2. ANTICOAGULANTS [Concomitant]
  3. ACLASTA [Suspect]
     Indication: OSTEONECROSIS
     Dosage: 5 MG, UNK
     Route: 042
     Dates: start: 20110408

REACTIONS (2)
  - INJECTION SITE HAEMATOMA [None]
  - CHEST PAIN [None]
